FAERS Safety Report 5524483-9 (Version None)
Quarter: 2007Q4

REPORT INFORMATION
  Report Type: 
  Country: None (occurrence: None)
  Receive Date: 20071122
  Receipt Date: 20071114
  Transmission Date: 20080405
  Serious: Yes (Other)
  Sender: FDA-Public Use
  Company Number: PHBS2007BE18753

PATIENT
  Age: 57 Year
  Sex: Male

DRUGS (3)
  1. ZOMETA [Suspect]
     Indication: METASTASES TO BONE
     Route: 042
     Dates: start: 20040101, end: 20050101
  2. AREDIA [Suspect]
     Indication: METASTASES TO BONE
     Route: 042
     Dates: start: 20050101, end: 20060101
  3. ANTIHYPERTENSIVES [Concomitant]

REACTIONS (8)
  - ACTINOMYCOSIS [None]
  - BONE DISORDER [None]
  - IMPAIRED HEALING [None]
  - OSTEITIS [None]
  - OSTEONECROSIS [None]
  - PURULENT DISCHARGE [None]
  - TOOTH EXTRACTION [None]
  - WOUND DEBRIDEMENT [None]
